FAERS Safety Report 4686641-5 (Version None)
Quarter: 2005Q2

REPORT INFORMATION
  Report Type: 
  Country: None (occurrence: None)
  Receive Date: 20050608
  Receipt Date: 20050524
  Transmission Date: 20051028
  Serious: Yes (Other)
  Sender: FDA-Public Use
  Company Number: 2005-05-0011

PATIENT
  Age: 64 Year
  Sex: Male

DRUGS (5)
  1. QVAR 40 [Suspect]
     Indication: ASTHMA
     Dosage: INHALATION
     Route: 055
     Dates: start: 20040201, end: 20040601
  2. FLUTICASONE PROPIONATE [Suspect]
     Indication: ASTHMA
     Dosage: INHALATION
     Route: 055
  3. THEOPHYLLINE [Concomitant]
  4. MONTELUKAST SODIUM [Concomitant]
  5. OXITROPIUM BROMIDE [Concomitant]

REACTIONS (6)
  - BLOOD GLUCOSE INCREASED [None]
  - BONE DENSITY DECREASED [None]
  - CALCULUS URINARY [None]
  - CUSHING'S SYNDROME [None]
  - LEUKOCYTOSIS [None]
  - NEPHROLITHIASIS [None]
